FAERS Safety Report 9856079 (Version 1)
Quarter: 2014Q1

REPORT INFORMATION
  Report Type: Spontaneous
  Country: US (occurrence: US)
  Receive Date: 20140130
  Receipt Date: 20140130
  Transmission Date: 20141002
  Serious: Yes (Hospitalization, Other)
  Sender: FDA-Public Use
  Company Number: US-PFIZER INC-2014024709

PATIENT
  Age: 40 Year
  Sex: Female
  Weight: 56.24 kg

DRUGS (2)
  1. ZITHROMAX [Suspect]
     Indication: RESPIRATORY TRACT INFECTION
     Dosage: 500 MG ONCE
     Route: 048
     Dates: start: 20140124, end: 20140124
  2. ATIVAN [Concomitant]
     Indication: ANXIETY
     Dosage: UNK (0.5-1MG), AS NEEDED

REACTIONS (10)
  - Abasia [Recovered/Resolved]
  - Palpitations [Recovered/Resolved]
  - Tachycardia [Unknown]
  - Dyspnoea [Recovered/Resolved]
  - Nausea [Recovered/Resolved]
  - Diarrhoea [Recovered/Resolved]
  - Headache [Recovered/Resolved]
  - Asthenia [Recovered/Resolved]
  - Dizziness [Recovered/Resolved]
  - Syncope [Recovered/Resolved]
